FAERS Safety Report 25269752 (Version 1)
Quarter: 2025Q2

REPORT INFORMATION
  Report Type: Spontaneous
  Country: US (occurrence: US)
  Receive Date: 20250505
  Receipt Date: 20250505
  Transmission Date: 20250717
  Serious: Yes (Hospitalization, Other)
  Sender: ALEXION PHARMACEUTICALS
  Company Number: US-AstraZeneca-CH-00857921A

PATIENT

DRUGS (6)
  1. TEZSPIRE [Suspect]
     Active Substance: TEZEPELUMAB-EKKO
     Route: 065
  2. TEZSPIRE [Suspect]
     Active Substance: TEZEPELUMAB-EKKO
     Route: 065
  3. TEZSPIRE [Suspect]
     Active Substance: TEZEPELUMAB-EKKO
     Route: 065
  4. FASENRA [Suspect]
     Active Substance: BENRALIZUMAB
     Route: 065
  5. SYMBICORT [Concomitant]
     Active Substance: BUDESONIDE\FORMOTEROL FUMARATE DIHYDRATE
     Route: 065
  6. ALLEGRA [Concomitant]
     Active Substance: FEXOFENADINE HYDROCHLORIDE
     Route: 065

REACTIONS (33)
  - Deafness unilateral [Unknown]
  - Accident [Unknown]
  - Dyspnoea [Unknown]
  - Arthralgia [Recovered/Resolved]
  - Neck pain [Recovered/Resolved]
  - Respiration abnormal [Unknown]
  - Abdominal discomfort [Unknown]
  - Hypersensitivity [Unknown]
  - Vomiting [Unknown]
  - Nasal dryness [Unknown]
  - Rhinitis atrophic [Unknown]
  - Ear discomfort [Unknown]
  - Headache [Unknown]
  - Gastrointestinal disorder [Unknown]
  - Vertigo [Unknown]
  - Drug ineffective [Unknown]
  - Product dose omission issue [Unknown]
  - Condition aggravated [Unknown]
  - Anxiety [Unknown]
  - Post-traumatic stress disorder [Unknown]
  - Vertigo [Unknown]
  - Dry mouth [Unknown]
  - Lip dry [Unknown]
  - Cough [Unknown]
  - Breath sounds abnormal [Unknown]
  - Respiratory tract congestion [Unknown]
  - Discharge [Unknown]
  - Procedural pain [Unknown]
  - Fall [Unknown]
  - Lower limb fracture [Unknown]
  - Pulmonary function test decreased [Unknown]
  - Ulcer [Unknown]
  - Drug intolerance [Unknown]
